FAERS Safety Report 7957246-5 (Version None)
Quarter: 2011Q4

REPORT INFORMATION
  Report Type: 
  Country: None (occurrence: None)
  Receive Date: 20111205
  Receipt Date: 20111122
  Transmission Date: 20120403
  Serious: Yes (Hospitalization, Other)
  Sender: FDA-Public Use
  Company Number: US-ELI_LILLY_AND_COMPANY-US201103004850

PATIENT
  Sex: Female
  Weight: 59 kg

DRUGS (11)
  1. RAMIPRIL [Concomitant]
     Dosage: UNK, UNKNOWN
     Route: 065
  2. FORTEO [Suspect]
     Indication: OSTEOPOROSIS
     Dosage: 20 UG, DAILY (1/D)
     Dates: start: 20110308, end: 20110311
  3. PLAVIX [Concomitant]
     Dosage: UNK, UNKNOWN
     Route: 065
  4. REGLAN [Concomitant]
     Dosage: UNK, UNKNOWN
     Route: 065
  5. NOVOLOG [Concomitant]
  6. CALCIUM + VITAMIN D [Concomitant]
     Dosage: UNK, UNKNOWN
     Route: 065
  7. FORTEO [Suspect]
     Dosage: 20 UG, QD
     Dates: start: 20110328
  8. KLOR-CON [Concomitant]
     Dosage: UNK, UNKNOWN
     Route: 065
  9. ASPIRIN [Concomitant]
     Dosage: UNK, UNKNOWN
     Route: 065
  10. DIOVAN HCT [Concomitant]
     Dosage: UNK, UNKNOWN
     Route: 065
  11. CRESTOR [Concomitant]
     Dosage: UNK, UNKNOWN
     Route: 065

REACTIONS (11)
  - FALL [None]
  - ASTHENIA [None]
  - BONE GRAFT [None]
  - HYPOTENSION [None]
  - INJECTION SITE PAIN [None]
  - GAIT DISTURBANCE [None]
  - LETHARGY [None]
  - JOINT STIFFNESS [None]
  - GASTROENTERITIS [None]
  - BONE DISORDER [None]
  - TOOTH EXTRACTION [None]
